FAERS Safety Report 8326447-9 (Version None)
Quarter: 2012Q2

REPORT INFORMATION
  Report Type: 
  Country: None (occurrence: None)
  Receive Date: 20120501
  Receipt Date: 20120426
  Transmission Date: 20120825
  Serious: Yes (Other)
  Sender: FDA-Public Use
  Company Number: PHHY2009CA21626

PATIENT
  Sex: Female

DRUGS (11)
  1. LEVOTHYROXINE SODIUM [Concomitant]
     Dosage: 50-75 MG
  2. VITAMIN C [Concomitant]
  3. SANDOSTATIN LAR [Suspect]
     Indication: ACROMEGALY
     Dosage: 20 MG, EVERY 10 DAYS
     Route: 030
     Dates: start: 20080604
  4. OMEGA-3 FATTY ACIDS [Concomitant]
  5. TRAMADOL HYDROCHLORIDE/ACETAMINOPHEN [Concomitant]
     Dosage: 2 TAB/ DAY
  6. LEVOTHYROXINE SODIUM [Concomitant]
     Dosage: 50 MG, UNK
  7. RABEPRAZOLE SODIUM [Concomitant]
     Dosage: 20 MG, DAILY
     Route: 048
  8. AVALIDE [Concomitant]
     Dosage: 25 MG, DAILY
     Route: 048
  9. VITAMIN B COMPLEX CAP [Concomitant]
  10. NAPROXEN [Concomitant]
     Dosage: 250 UNK, BID
  11. VITAMIN D [Concomitant]
     Dosage: 1200 U, QD

REACTIONS (3)
  - INSULIN-LIKE GROWTH FACTOR INCREASED [None]
  - CONSTIPATION [None]
  - PAIN [None]
